FAERS Safety Report 11167656 (Version 1)
Quarter: 2015Q2

REPORT INFORMATION
  Report Type: Spontaneous
  Country: BR (occurrence: BR)
  Receive Date: 20150605
  Receipt Date: 20150605
  Transmission Date: 20150821
  Serious: Yes (Other)
  Sender: FDA-Public Use
  Company Number: BR-SA-2014SA092869

PATIENT
  Sex: Female

DRUGS (4)
  1. LANTUS SOLOSTAR [Suspect]
     Active Substance: INSULIN GLARGINE
     Indication: TYPE 1 DIABETES MELLITUS
     Route: 065
  2. SOLOSTAR [Concomitant]
     Active Substance: DEVICE
  3. LANTUS SOLOSTAR [Suspect]
     Active Substance: INSULIN GLARGINE
     Indication: TYPE 1 DIABETES MELLITUS
     Route: 065
     Dates: start: 201404
  4. SOLOSTAR [Concomitant]
     Active Substance: DEVICE
     Dates: start: 201504

REACTIONS (4)
  - Pre-eclampsia [Recovered/Resolved]
  - Wrong technique in drug usage process [Unknown]
  - Exposure during pregnancy [Unknown]
  - Eclampsia [Recovered/Resolved]
